FAERS Safety Report 6320397-5 (Version None)
Quarter: 2009Q3

REPORT INFORMATION
  Report Type: 
  Country: None (occurrence: None)
  Receive Date: 20090822
  Receipt Date: 20081106
  Transmission Date: 20100115
  Serious: No
  Sender: FDA-Public Use
  Company Number: US-ABBOTT-08P-163-0486187-00

PATIENT
  Sex: Female
  Weight: 74.002 kg

DRUGS (10)
  1. NIASPAN [Suspect]
     Indication: BLOOD CHOLESTEROL
     Dosage: PEACH- COATED FORMULATION  PEACH COATED
     Route: 048
     Dates: start: 20080801, end: 20081001
  2. NIASPAN [Suspect]
     Dosage: WHITE-UNCOATED FORMULATION
     Route: 048
     Dates: start: 20060101
  3. NIASPAN [Suspect]
     Dosage: WHITE UNCOATED FORMULATION
     Route: 048
     Dates: start: 20060101, end: 20080701
  4. NIASPAN [Suspect]
     Dosage: PEACH COATED FORMULATION
     Route: 048
     Dates: start: 20080701, end: 20080801
  5. LIDOCAINE [Suspect]
     Indication: JOINT INJURY
  6. STEROID [Suspect]
     Indication: JOINT INJURY
     Route: 030
  7. LIDOCAINE [Suspect]
     Indication: JOINT INJURY
     Route: 062
     Dates: start: 20080801, end: 20080801
  8. ASPIRIN [Concomitant]
     Indication: PROPHYLAXIS
     Dates: start: 20060101
  9. ASPIRIN [Concomitant]
  10. LIDOCAINE [Concomitant]
     Indication: JOINT INJURY
     Route: 061
     Dates: start: 20080801

REACTIONS (4)
  - ERYTHEMA [None]
  - FLUSHING [None]
  - JOINT INJURY [None]
  - PRURITUS GENERALISED [None]
